FAERS Safety Report 6420987-5 (Version None)
Quarter: 2009Q4

REPORT INFORMATION
  Report Type: 
  Country: None (occurrence: None)
  Receive Date: 20091030
  Receipt Date: 20091022
  Transmission Date: 20100525
  Serious: Yes (Other)
  Sender: FDA-Public Use
  Company Number: US-ROCHE-663374

PATIENT
  Sex: Male
  Weight: 87.1 kg

DRUGS (9)
  1. PEGASYS [Suspect]
     Indication: HEPATITIS C
     Dosage: FORM:PRE FILLED SYRINGE; WEEK 93 OF TREATMENT
     Route: 058
     Dates: start: 20080116
  2. RIBAVIRIN [Suspect]
     Indication: HEPATITIS C
     Dosage: DIVIDED DOSES ; FORM: PILL; WEEK 93 OF TREATMENT
     Route: 048
     Dates: start: 20080116, end: 20080401
  3. RIBAVIRIN [Suspect]
     Route: 048
     Dates: start: 20080401, end: 20080601
  4. RIBAVIRIN [Suspect]
     Route: 048
     Dates: start: 20080601, end: 20091017
  5. RIBAVIRIN [Suspect]
     Dosage: 2 IN THE MORNING AND 2 IN THE EVENING
     Route: 048
     Dates: start: 20091017
  6. TRAZODONE [Concomitant]
     Indication: INSOMNIA
     Dosage: TAKEN EVERY NIGHT
  7. GEODON [Concomitant]
     Indication: ANTIDEPRESSANT THERAPY
     Dosage: TAKEN AS ANTI-DEPRESSANT AND ANTI-PSYCHOSIS
  8. RISPERDAL CONSTA [Concomitant]
     Indication: ANTIDEPRESSANT THERAPY
     Dosage: TAKEN AS ANTI-DEPRESSANT AND ANTI-PSYCHOSIS
  9. LEVOXYL [Concomitant]
     Indication: HYPOTHYROIDISM

REACTIONS (8)
  - CHOLELITHIASIS [None]
  - DIARRHOEA [None]
  - FATIGUE [None]
  - POLLAKIURIA [None]
  - PYREXIA [None]
  - RED BLOOD CELL COUNT DECREASED [None]
  - WEIGHT DECREASED [None]
  - WHITE BLOOD CELL COUNT DECREASED [None]
